FAERS Safety Report 5143486-X (Version None)
Quarter: 2006Q4

REPORT INFORMATION
  Report Type: 
  Country: None (occurrence: None)
  Receive Date: 20061103
  Receipt Date: 20060913
  Transmission Date: 20070319
  Serious: Yes (Other)
  Sender: FDA-Public Use
  Company Number: JP-JPN-A200603675

PATIENT
  Age: 88 Year
  Sex: Female

DRUGS (7)
  1. PAXIL [Suspect]
     Indication: DEPRESSION
     Route: 048
     Dates: start: 20060830, end: 20061023
  2. RIZE [Concomitant]
     Indication: INSOMNIA
     Dosage: 5MG PER DAY
     Route: 048
  3. KAMAG G [Concomitant]
     Indication: CONSTIPATION
     Route: 048
  4. BUP-4 [Concomitant]
     Indication: POLLAKIURIA
     Route: 048
     Dates: start: 20060906, end: 20060924
  5. DIOVAN [Concomitant]
     Indication: HYPERTENSION
     Route: 048
     Dates: end: 20060924
  6. VESICARE [Concomitant]
     Indication: POLLAKIURIA
     Dosage: 5MG PER DAY
     Route: 048
     Dates: start: 20060925
  7. MICARDIS [Concomitant]
     Indication: HYPERTENSION
     Dosage: 40MG PER DAY
     Route: 048
     Dates: start: 20060926

REACTIONS (8)
  - DYSARTHRIA [None]
  - EXPRESSIVE LANGUAGE DISORDER [None]
  - HALLUCINATION, VISUAL [None]
  - INSOMNIA [None]
  - NOCTURIA [None]
  - POLLAKIURIA [None]
  - SPEECH DISORDER [None]
  - THIRST [None]
